FAERS Safety Report 6126814-8 (Version None)
Quarter: 2009Q1

REPORT INFORMATION
  Report Type: 
  Country: None (occurrence: None)
  Receive Date: 20090320
  Receipt Date: 20090311
  Transmission Date: 20090719
  Serious: Yes (Other)
  Sender: FDA-Public Use
  Company Number: PHHY2009FR09855

PATIENT
  Age: 47 Year
  Sex: Female

DRUGS (2)
  1. COTAREG [Suspect]
     Indication: HYPERTENSION
     Dosage: 1 DF, QD
     Dates: end: 20090306
  2. CHLORMADINONE ACETATE TAB [Suspect]

REACTIONS (6)
  - DIZZINESS [None]
  - FATIGUE [None]
  - HYPOGAMMAGLOBULINAEMIA [None]
  - MYCOPLASMA INFECTION [None]
  - PALLOR [None]
  - PYREXIA [None]
